FAERS Safety Report 7743147-4 (Version None)
Quarter: 2011Q3

REPORT INFORMATION
  Report Type: 
  Country: None (occurrence: None)
  Receive Date: 20110912
  Receipt Date: 20110903
  Transmission Date: 20111222
  Serious: Yes (Other)
  Sender: FDA-Public Use
  Company Number: DZ-ROCHE-800863

PATIENT
  Sex: Female

DRUGS (3)
  1. AVASTIN [Suspect]
     Indication: BREAST CANCER
     Dosage: FREQUENCY : PER CURE
     Route: 065
     Dates: start: 20100927
  2. AVASTIN [Suspect]
     Dosage: FREQUENCY : PER CURE
     Route: 065
     Dates: end: 20110530
  3. PACLITAXEL [Suspect]
     Indication: BREAST CANCER
     Dosage: FREQUENCY : PER CURE
     Route: 065

REACTIONS (3)
  - DISEASE PROGRESSION [None]
  - PROTEINURIA [None]
  - CALCULUS BLADDER [None]
